FAERS Safety Report 5560109-6 (Version None)
Quarter: 2007Q4

REPORT INFORMATION
  Report Type: 
  Country: None (occurrence: None)
  Receive Date: 20071214
  Receipt Date: 20071026
  Transmission Date: 20080405
  Serious: No
  Sender: FDA-Public Use
  Company Number: US-ABBOTT-07P-163-0422491-00

PATIENT
  Sex: Female
  Weight: 91 kg

DRUGS (3)
  1. HUMIRA [Suspect]
     Indication: ANKYLOSING SPONDYLITIS
     Route: 058
     Dates: start: 20061001
  2. HUMIRA [Suspect]
     Indication: CROHN'S DISEASE
  3. LEVOTHYROXINE SODIUM [Concomitant]
     Indication: HYPOTHYROIDISM
     Route: 048

REACTIONS (4)
  - COUGH [None]
  - HEADACHE [None]
  - NASOPHARYNGITIS [None]
  - SINUS CONGESTION [None]
